FAERS Safety Report 5839458-X (Version None)
Quarter: 2008Q3

REPORT INFORMATION
  Report Type: 
  Country: None (occurrence: None)
  Receive Date: 20080807
  Receipt Date: 20080723
  Transmission Date: 20090109
  Serious: Yes (Death, Life-Threatening, Hospitalization)
  Sender: FDA-Public Use
  Company Number: 2008S1013204

PATIENT
  Age: 61 Year
  Sex: Female

DRUGS (5)
  1. CLOMIPRAMINE HCL [Suspect]
     Indication: DEPRESSION
     Dosage: 75 MG; TWICE A DAY; ORAL
     Route: 048
     Dates: end: 20060920
  2. METHYLENE BLUE         (METHYLTHIONINIUM CHLORIDE) [Suspect]
     Indication: PARATHYROID TUMOUR
     Dosage: 7.5 MG/KG; DAILY
     Dates: start: 20060920, end: 20060920
  3. ANASTROZOLE [Concomitant]
  4. PROPRANOLOL [Concomitant]
  5. ARIMIDEX [Concomitant]

REACTIONS (9)
  - CEREBRAL DISORDER [None]
  - CLONUS [None]
  - COMA [None]
  - CONVULSION [None]
  - DIABETES INSIPIDUS [None]
  - DRUG INTERACTION [None]
  - HYPERTONIA [None]
  - MULTI-ORGAN FAILURE [None]
  - SEROTONIN SYNDROME [None]
